FAERS Safety Report 25413159 (Version 1)
Quarter: 2025Q2

REPORT INFORMATION
  Report Type: Spontaneous
  Country: CA (occurrence: CA)
  Receive Date: 20250609
  Receipt Date: 20250609
  Transmission Date: 20250716
  Serious: Yes (Other)
  Sender: PFIZER
  Company Number: CA-PFIZER INC-202500116442

PATIENT
  Age: 37 Year
  Sex: Female

DRUGS (1)
  1. ABRILADA [Suspect]
     Active Substance: ADALIMUMAB-AFZB
     Indication: Hidradenitis
     Dosage: 1 DF, WEEKLY (160MG AT WEEK 0, 80MG AT WEEK 2, THEN 40MG EVERY WEEK STARTING AT WEEK 4)
     Route: 058
     Dates: start: 20230614

REACTIONS (1)
  - Uterine cancer [Unknown]
